FAERS Safety Report 25890091 (Version 1)
Quarter: 2025Q4

REPORT INFORMATION
  Report Type: Spontaneous
  Country: EU (occurrence: EU)
  Receive Date: 20251007
  Receipt Date: 20251007
  Transmission Date: 20260117
  Serious: Yes (Hospitalization)
  Sender: RANBAXY
  Company Number: EU-AGEMED-907160244

PATIENT
  Age: 20 Year
  Sex: Female

DRUGS (6)
  1. ACETAMINOPHEN [Interacting]
     Active Substance: ACETAMINOPHEN
     Indication: Product used for unknown indication
     Dosage: 7 GRAM, IN TOTAL, 7CPS || DOSE UNIT FREQUENCY: 7 G-GRAMS || DOSE PER INTAKE: 7 G-GRAMS || NUMBER OF
     Route: 048
     Dates: start: 20130821, end: 20130821
  2. FLUOXETINE [Interacting]
     Active Substance: FLUOXETINE HYDROCHLORIDE
     Indication: Product used for unknown indication
     Dosage: 800 MILLIGRAM, IN TOTAL, 40 CPS || DOSE UNIT FREQUENCY: 800 MG-MILLIGRAMS || DOSE PER INTAKE: 800 MG
     Route: 048
     Dates: start: 20130821, end: 20130821
  3. GABAPENTIN [Interacting]
     Active Substance: GABAPENTIN
     Indication: Product used for unknown indication
     Dosage: 30CPS
     Route: 048
     Dates: start: 20130821, end: 20130821
  4. BROMAZEPAM [Interacting]
     Active Substance: BROMAZEPAM
     Indication: Product used for unknown indication
     Dosage: 45 MILLIGRAM, IN TOTAL1, 30 CPS || DOSE PER UNIT FREQUENCY: 45 MG-MILLIGRAMS || DOSE PER INTAKE: 45
     Route: 048
     Dates: start: 20130821, end: 20130821
  5. QUETIAPINE [Interacting]
     Active Substance: QUETIAPINE
     Indication: Product used for unknown indication
     Dosage: 6 CPS || FREQUENCY UNIT: 0 TOTAL
     Route: 048
     Dates: start: 20130821, end: 20130821
  6. PENICILLIN V [Interacting]
     Active Substance: PENICILLIN V
     Indication: Product used for unknown indication
     Dosage: 6CPS || FREQUENCY UNIT: 0 TOTAL
     Route: 048
     Dates: start: 20130821, end: 20130821

REACTIONS (4)
  - Hepatic cytolysis [Recovered/Resolved]
  - Rhabdomyolysis [Recovering/Resolving]
  - Intentional overdose [Recovered/Resolved]
  - Suicide attempt [Unknown]

NARRATIVE: CASE EVENT DATE: 20130821
